FAERS Safety Report 11205833 (Version 1)
Quarter: 2015Q2

REPORT INFORMATION
  Report Type: Spontaneous
  Country: BR (occurrence: BR)
  Receive Date: 20150622
  Receipt Date: 20150622
  Transmission Date: 20150821
  Serious: Yes (Other)
  Sender: FDA-Public Use
  Company Number: BR-ROCHE-1594323

PATIENT
  Sex: Female
  Weight: 85 kg

DRUGS (5)
  1. SIBUTRAMINE [Interacting]
     Active Substance: SIBUTRAMINE
     Indication: PRODUCT USED FOR UNKNOWN INDICATION
     Route: 065
  2. RIVOTRIL [Suspect]
     Active Substance: CLONAZEPAM
     Indication: INSOMNIA
     Dosage: AT NIGHT
     Route: 065
  3. XENICAL [Suspect]
     Active Substance: ORLISTAT
     Indication: OVERWEIGHT
     Route: 065
     Dates: start: 1995
  4. RISPERIDONE. [Concomitant]
     Active Substance: RISPERIDONE
     Indication: PRODUCT USED FOR UNKNOWN INDICATION
     Dosage: AT NIGHT
     Route: 065
  5. FRONTAL [Suspect]
     Active Substance: ALPRAZOLAM
     Indication: PRODUCT USED FOR UNKNOWN INDICATION
     Route: 065

REACTIONS (14)
  - Panic disorder [Not Recovered/Not Resolved]
  - Alcohol interaction [Unknown]
  - Alopecia [Recovered/Resolved]
  - Depression [Not Recovered/Not Resolved]
  - Exercise lack of [Not Recovered/Not Resolved]
  - Dandruff [Unknown]
  - Schizophrenia [Not Recovered/Not Resolved]
  - Visual impairment [Unknown]
  - Constipation [Not Recovered/Not Resolved]
  - Weight loss poor [Not Recovered/Not Resolved]
  - Polycystic ovaries [Not Recovered/Not Resolved]
  - Tremor [Not Recovered/Not Resolved]
  - Malaise [Unknown]
  - Weight increased [Not Recovered/Not Resolved]

NARRATIVE: CASE EVENT DATE: 2006
